FAERS Safety Report 14503078 (Version 1)
Quarter: 2018Q1

REPORT INFORMATION
  Report Type: Spontaneous
  Country: US (occurrence: US)
  Receive Date: 20180208
  Receipt Date: 20180208
  Transmission Date: 20180509
  Serious: No
  Sender: FDA-Public Use
  Company Number: US-PFIZER INC-2018054407

PATIENT
  Age: 75 Year
  Sex: Female
  Weight: 100 kg

DRUGS (2)
  1. LYRICA [Suspect]
     Active Substance: PREGABALIN
     Indication: FIBROMYALGIA
     Dosage: 50 MG, 1X/DAY
     Dates: start: 20180117, end: 201801
  2. LYRICA [Suspect]
     Active Substance: PREGABALIN
     Dosage: 100 MG (TWO 50 MG CAPSULES), DAILY
     Dates: start: 201801, end: 20180202

REACTIONS (4)
  - Fibromyalgia [Not Recovered/Not Resolved]
  - Muscle twitching [Recovered/Resolved]
  - Condition aggravated [Not Recovered/Not Resolved]
  - Malaise [Unknown]

NARRATIVE: CASE EVENT DATE: 20180201
